FAERS Safety Report 9636510 (Version 2)
Quarter: 2013Q4

REPORT INFORMATION
  Report Type: Spontaneous
  Country: CH (occurrence: CH)
  Receive Date: 20131021
  Receipt Date: 20131227
  Transmission Date: 20140711
  Serious: Yes (Congenital Anomaly)
  Sender: FDA-Public Use
  Company Number: PHHY2013CH115287

PATIENT
  Sex: Female
  Weight: 3.1 kg

DRUGS (2)
  1. CLARITHROMYCIN SANDOZ [Suspect]
     Dosage: 500 MG, BID (MATERNAL)
     Route: 064
     Dates: start: 201211, end: 201211
  2. FOLIC ACID [Concomitant]
     Route: 064
     Dates: start: 201212

REACTIONS (3)
  - Congenital anomaly [Unknown]
  - Developmental hip dysplasia [Unknown]
  - Foetal exposure during pregnancy [Recovered/Resolved]
